FAERS Safety Report 26186460 (Version 1)
Quarter: 2025Q4

REPORT INFORMATION
  Report Type: Spontaneous
  Country: US (occurrence: None)
  Receive Date: 20251219
  Receipt Date: 20251219
  Transmission Date: 20260118
  Serious: Yes (Hospitalization)
  Sender: FDA-CTU
  Company Number: None

PATIENT
  Age: 74 Year
  Sex: Male

DRUGS (1)
  1. METOPROLOL SUCCINATE [Suspect]
     Active Substance: METOPROLOL SUCCINATE
     Indication: Hypertension
     Dosage: FREQUENCY : DAILY;
     Route: 048
     Dates: start: 20240823, end: 20250227

REACTIONS (6)
  - Bradycardia [None]
  - Hypotension [None]
  - Road traffic accident [None]
  - Rib fracture [None]
  - Traumatic liver injury [None]
  - Haemoglobin decreased [None]

NARRATIVE: CASE EVENT DATE: 20250227
